FAERS Safety Report 18020114 (Version 1)
Quarter: 2020Q3

REPORT INFORMATION
  Report Type: Spontaneous
  Country: US (occurrence: US)
  Receive Date: 20200714
  Receipt Date: 20200714
  Transmission Date: 20201103
  Serious: Yes (Other)
  Sender: FDA-Public Use
  Company Number: None

PATIENT
  Age: 48 Year
  Sex: Male
  Weight: 68 kg

DRUGS (9)
  1. MORPHINE SULFATE 30MG [Concomitant]
  2. DEXAMETHASONE 4MG [Concomitant]
     Active Substance: DEXAMETHASONE
  3. PROCHLORPERAZINE 4MG [Concomitant]
  4. OXYCODONE 5MG [Concomitant]
     Active Substance: OXYCODONE
  5. ALECENSA [Suspect]
     Active Substance: ALECTINIB HYDROCHLORIDE
     Indication: LUNG NEOPLASM MALIGNANT
     Route: 048
     Dates: start: 20200616, end: 20200627
  6. FOLIC ACID 1MG [Concomitant]
     Active Substance: FOLIC ACID
  7. DRONABINOL 2.5MG [Concomitant]
     Active Substance: DRONABINOL
  8. LORAZEPAM 0.5MG [Concomitant]
     Active Substance: LORAZEPAM
  9. ONDANSETRON 8MG [Concomitant]
     Active Substance: ONDANSETRON

REACTIONS (2)
  - Skin irritation [None]
  - Therapy cessation [None]

NARRATIVE: CASE EVENT DATE: 20200627
